FAERS Safety Report 8573920-4 (Version None)
Quarter: 2012Q3

REPORT INFORMATION
  Report Type: 
  Country: None (occurrence: None)
  Receive Date: 20120806
  Receipt Date: 20120727
  Transmission Date: 20120928
  Serious: Yes (Other)
  Sender: FDA-Public Use
  Company Number: JP-VERTEX PHARMACEUTICALS INC.-AE-2012-011240

PATIENT
  Age: 56 Year
  Sex: Female

DRUGS (7)
  1. RIBAVIRIN [Concomitant]
     Indication: HEPATITIS C
     Route: 048
     Dates: end: 20120618
  2. RIBAVIRIN [Concomitant]
     Route: 048
     Dates: start: 20120619, end: 20120625
  3. PEG-INTRON [Concomitant]
     Indication: HEPATITIS C
     Route: 058
     Dates: start: 20120605, end: 20120626
  4. TELAVIC (TELAPREVIR) [Suspect]
     Indication: HEPATITIS C
     Route: 048
     Dates: start: 20120605
  5. PEG-INTRON [Concomitant]
     Route: 058
     Dates: start: 20120703
  6. TALION [Concomitant]
     Route: 048
     Dates: start: 20120717
  7. RIBAVIRIN [Concomitant]
     Route: 048
     Dates: start: 20120626

REACTIONS (1)
  - NEUTROPHIL COUNT DECREASED [None]
